FAERS Safety Report 6697691-1 (Version None)
Quarter: 2010Q2

REPORT INFORMATION
  Report Type: 
  Country: None (occurrence: None)
  Receive Date: 20100423
  Receipt Date: 20100412
  Transmission Date: 20101027
  Serious: Yes (Other)
  Sender: FDA-Public Use
  Company Number: 7001285

PATIENT
  Age: 33 Year
  Sex: Female

DRUGS (4)
  1. REBIF [Suspect]
     Indication: MULTIPLE SCLEROSIS
     Dosage: 44 MCG, 3 IN 1 WK, SUBCUTANEOUS; 22 MCG, 3 IN 1 WK, SUBCUTANEOUS
     Route: 058
     Dates: start: 20080204
  2. DEPO-PROVERA [Concomitant]
  3. OBETROL [Concomitant]
  4. VALIUM [Concomitant]

REACTIONS (9)
  - FALL [None]
  - HEPATOTOXICITY [None]
  - HYPOAESTHESIA [None]
  - LIMB INJURY [None]
  - MULTIPLE SCLEROSIS RELAPSE [None]
  - MUSCULOSKELETAL PAIN [None]
  - OEDEMA PERIPHERAL [None]
  - PAIN IN EXTREMITY [None]
  - UPPER LIMB FRACTURE [None]
